FAERS Safety Report 5910113-0 (Version None)
Quarter: 2008Q4

REPORT INFORMATION
  Report Type: 
  Country: None (occurrence: None)
  Receive Date: 20081007
  Receipt Date: 20070918
  Transmission Date: 20090506
  Serious: Yes (Other)
  Sender: FDA-Public Use
  Company Number: US-ASTRAZENECA-2007UW21943

PATIENT
  Age: 65 Year
  Sex: Female
  Weight: 113.4 kg

DRUGS (10)
  1. ARIMIDEX [Suspect]
     Indication: BREAST CANCER
     Route: 048
  2. CELEBREX [Concomitant]
  3. ZANTAC [Concomitant]
  4. HYDROCHLOROTHIAZIDE [Concomitant]
  5. NEURONTIN [Concomitant]
  6. POTASSIUM CHLORIDE [Concomitant]
  7. SYNTHROID [Concomitant]
  8. TOPROL-XL [Concomitant]
     Route: 048
  9. DIOVAN [Concomitant]
  10. MULTI-VITAMINS [Concomitant]

REACTIONS (1)
  - ARTHRALGIA [None]
